FAERS Safety Report 6800592-9 (Version None)
Quarter: 2010Q2

REPORT INFORMATION
  Report Type: 
  Country: None (occurrence: None)
  Receive Date: 20100625
  Receipt Date: 20100625
  Transmission Date: 20101027
  Serious: Yes (Other)
  Sender: FDA-Public Use
  Company Number: None

PATIENT
  Sex: Female
  Weight: 65.7716 kg

DRUGS (1)
  1. OMEPRAZOLE [Suspect]
     Indication: GASTRITIS
     Dosage: 1 X DAY PO
     Route: 048
     Dates: start: 20100604, end: 20100623

REACTIONS (7)
  - AGGRESSION [None]
  - CONFUSIONAL STATE [None]
  - FEELING ABNORMAL [None]
  - FRUSTRATION [None]
  - HEADACHE [None]
  - UNEVALUABLE EVENT [None]
  - VISION BLURRED [None]
